FAERS Safety Report 14881362 (Version 1)
Quarter: 2018Q2

REPORT INFORMATION
  Report Type: Other
  Country: FR (occurrence: FR)
  Receive Date: 20180511
  Receipt Date: 20180511
  Transmission Date: 20180711
  Serious: Yes (Hospitalization)
  Sender: FDA-Public Use
  Company Number: FR-GLENMARK PHARMACEUTICALS-2018GMK035127

PATIENT

DRUGS (10)
  1. XEROQUEL LP 400 MG, COMPRIM? ? LIB?RATION PROLONG?E [Suspect]
     Active Substance: QUETIAPINE FUMARATE
     Indication: SUICIDE ATTEMPT
     Dosage: 2 DF, SINGLE, IN TOTAL
     Route: 048
     Dates: start: 20180212, end: 20180212
  2. NORSET 15 MG, COMPRIM? PELLICUL? [Suspect]
     Active Substance: MIRTAZAPINE
     Indication: SUICIDE ATTEMPT
     Dosage: 7 DF, SINGLE, IN TOTAL
     Route: 048
     Dates: start: 20180212, end: 20180212
  3. CHLORPROMAZINE. [Suspect]
     Active Substance: CHLORPROMAZINE
     Indication: SUICIDE ATTEMPT
     Dosage: 250 MG, SINGLE, IN TOTAL
     Route: 048
     Dates: start: 20180212, end: 20180212
  4. IMOVANE [Suspect]
     Active Substance: ZOPICLONE
     Indication: SUICIDE ATTEMPT
     Dosage: 14 DF, SINGLE, IN TOTAL
     Route: 048
     Dates: start: 20180212, end: 20180212
  5. THERALENE 5 MG, COMPRIM? PELLICUL? S?CABLE [Concomitant]
     Active Substance: TRIMEPRAZINE TARTRATE
     Indication: PRODUCT USED FOR UNKNOWN INDICATION
     Dosage: 1 DF, OD
     Route: 048
  6. SULFARLEM S 25 MG, COMPRIM? ENROB? [Concomitant]
     Indication: PRODUCT USED FOR UNKNOWN INDICATION
     Dosage: 4 DF, OD
     Route: 048
  7. TOPIRAMATE. [Suspect]
     Active Substance: TOPIRAMATE
     Indication: SUICIDE ATTEMPT
     Dosage: 200 MG, SINGLE,  IN TOTAL
     Route: 048
     Dates: start: 20180212, end: 20180212
  8. SERESTA 50 MG, COMPRIM? S?CABLE [Suspect]
     Active Substance: OXAZEPAM
     Indication: SUICIDE ATTEMPT
     Dosage: 39 DF, SINGLE, IN TOTAL
     Route: 048
     Dates: start: 20180212, end: 20180212
  9. PROPRANOLOL [Suspect]
     Active Substance: PROPRANOLOL HYDROCHLORIDE
     Indication: SUICIDE ATTEMPT
     Dosage: 8 DF, SINGLE, IN TOTAL
     Route: 048
     Dates: start: 20180212, end: 20180212
  10. EFFEXOR [Suspect]
     Active Substance: VENLAFAXINE HYDROCHLORIDE
     Indication: SUICIDE ATTEMPT
     Dosage: 8 DF, SINGLE, IN TOTAL
     Route: 048
     Dates: start: 20180212, end: 20180212

REACTIONS (1)
  - Altered state of consciousness [Recovered/Resolved]

NARRATIVE: CASE EVENT DATE: 20180212
